FAERS Safety Report 10587703 (Version 2)
Quarter: 2014Q4

REPORT INFORMATION
  Report Type: Spontaneous
  Country: US (occurrence: US)
  Receive Date: 20141117
  Receipt Date: 20141216
  Transmission Date: 20150529
  Serious: No
  Sender: FDA-Public Use
  Company Number: US-009507513-1411USA003126

PATIENT
  Age: 14 Year
  Sex: Female
  Weight: 77.55 kg

DRUGS (3)
  1. ZYRTEC [Concomitant]
     Active Substance: CETIRIZINE HYDROCHLORIDE
     Dosage: UNK
  2. NEXPLANON [Suspect]
     Active Substance: ETONOGESTREL
     Indication: CONTRACEPTION
     Dosage: 1 ROD
     Route: 059
     Dates: start: 20140924, end: 20141106
  3. PROZAC [Concomitant]
     Active Substance: FLUOXETINE HYDROCHLORIDE
     Dosage: UNK

REACTIONS (5)
  - Implant site erythema [Recovered/Resolved]
  - Implant site warmth [Not Recovered/Not Resolved]
  - Implant site swelling [Not Recovered/Not Resolved]
  - Device related infection [Not Recovered/Not Resolved]
  - Implant site irritation [Recovered/Resolved]

NARRATIVE: CASE EVENT DATE: 20141023
